FAERS Safety Report 9233945 (Version 1)
Quarter: 2013Q1

REPORT INFORMATION
  Report Type: Spontaneous
  Country: US (occurrence: None)
  Receive Date: 20121031
  Receipt Date: 20121031
  Transmission Date: 20140127
  Serious: No
  Sender: FDA-Public Use
  Company Number: PHEH2012US016349

PATIENT
  Age: 42 Year
  Sex: Female

DRUGS (1)
  1. GILENYA [Suspect]
     Route: 048
     Dates: start: 20110414

REACTIONS (5)
  - Balance disorder [None]
  - Fatigue [None]
  - Diarrhoea [None]
  - Headache [None]
  - Back pain [None]
